FAERS Safety Report 5273218-6 (Version None)
Quarter: 2007Q1

REPORT INFORMATION
  Report Type: 
  Country: None (occurrence: None)
  Receive Date: 20070319
  Receipt Date: 20070312
  Transmission Date: 20070707
  Serious: Yes (Other)
  Sender: FDA-Public Use
  Company Number: 2007SP002325

PATIENT
  Sex: Male

DRUGS (2)
  1. PROVENTIL-HFA [Suspect]
     Dosage: PO
     Route: 048
  2. COMBIVENT [Concomitant]

REACTIONS (2)
  - CARDIAC FAILURE [None]
  - PHARMACEUTICAL PRODUCT COMPLAINT [None]
